FAERS Safety Report 10871873 (Version 1)
Quarter: 2015Q1

REPORT INFORMATION
  Report Type: Spontaneous
  Country: US (occurrence: None)
  Receive Date: 20150223
  Receipt Date: 20150223
  Transmission Date: 20150721
  Serious: Yes (Hospitalization, Disabling, Congenital Anomaly)
  Sender: FDA-Public Use
  Company Number: None

PATIENT
  Age: 2 Week
  Sex: Female
  Weight: 9.98 kg

DRUGS (11)
  1. KANGAROO JOEY PUMP [Concomitant]
  2. RANITIDINE [Concomitant]
     Active Substance: RANITIDINE\RANITIDINE HYDROCHLORIDE
  3. MULTIVITAMIN [Concomitant]
     Active Substance: VITAMINS
  4. O2 MONITOR [Concomitant]
  5. ZOFRAN [Suspect]
     Active Substance: ONDANSETRON HYDROCHLORIDE
     Indication: VOMITING
     Dosage: 1 PILL
     Route: 048
     Dates: start: 201305, end: 201306
  6. ZOFRAN [Suspect]
     Active Substance: ONDANSETRON HYDROCHLORIDE
     Indication: NAUSEA
     Dosage: 1 PILL
     Route: 048
     Dates: start: 201305, end: 201306
  7. SILDENAFIL. [Concomitant]
     Active Substance: SILDENAFIL
  8. LASIX [Concomitant]
     Active Substance: FUROSEMIDE
  9. MIC-KEY BUTTON [Concomitant]
  10. OXYGEN. [Concomitant]
     Active Substance: OXYGEN
  11. REMODULIN [Concomitant]
     Active Substance: TREPROSTINIL

REACTIONS (4)
  - Pulmonary hypertension [None]
  - Maternal drugs affecting foetus [None]
  - Premature baby [None]
  - Atrial septal defect [None]

NARRATIVE: CASE EVENT DATE: 20141013
